FAERS Safety Report 11784746 (Version 1)
Quarter: 2015Q4

REPORT INFORMATION
  Report Type: Spontaneous
  Country: US (occurrence: US)
  Receive Date: 20151130
  Receipt Date: 20151130
  Transmission Date: 20160305
  Serious: No
  Sender: FDA-Public Use
  Company Number: US-APOTEX-2015AP012836

PATIENT
  Age: 65 Month

DRUGS (1)
  1. HYDROCHLOROTHIAZIDE. [Suspect]
     Active Substance: HYDROCHLOROTHIAZIDE
     Indication: DIABETES INSIPIDUS
     Dosage: STARTING DOSE WAS 1-2 MG/KG/DAY
     Route: 065

REACTIONS (1)
  - Hypercalcaemia [Recovered/Resolved]
